FAERS Safety Report 19318748 (Version 1)
Quarter: 2021Q2

REPORT INFORMATION
  Report Type: Spontaneous
  Country: US (occurrence: US)
  Receive Date: 20210527
  Receipt Date: 20210527
  Transmission Date: 20210717
  Serious: Yes (Other)
  Sender: FDA-Public Use
  Company Number: None

PATIENT
  Sex: Male
  Weight: 81 kg

DRUGS (2)
  1. OXYCODONE [Suspect]
     Active Substance: OXYCODONE
     Indication: PAIN
     Route: 048
  2. OXYCODONE [Suspect]
     Active Substance: OXYCODONE
     Indication: SPINAL OSTEOARTHRITIS
     Route: 048

REACTIONS (6)
  - Pain [None]
  - Product substitution issue [None]
  - Adverse drug reaction [None]
  - Impaired work ability [None]
  - Social avoidant behaviour [None]
  - Drug ineffective [None]
